FAERS Safety Report 19019898 (Version 1)
Quarter: 2021Q1

REPORT INFORMATION
  Report Type: Spontaneous
  Country: US (occurrence: US)
  Receive Date: 20210317
  Receipt Date: 20210317
  Transmission Date: 20210420
  Serious: Yes (Other)
  Sender: FDA-Public Use
  Company Number: None

PATIENT
  Sex: Female

DRUGS (1)
  1. LEVOCETIRIZINE LIQUID [Suspect]
     Active Substance: LEVOCETIRIZINE

REACTIONS (3)
  - Influenza like illness [None]
  - Headache [None]
  - Nausea [None]
